FAERS Safety Report 15729414 (Version 2)
Quarter: 2019Q1

REPORT INFORMATION
  Report Type: Spontaneous
  Country: ES (occurrence: ES)
  Receive Date: 20181217
  Receipt Date: 20190103
  Transmission Date: 20190417
  Serious: Yes (Hospitalization, Other)
  Sender: FDA-Public Use
  Company Number: ES-GLAXOSMITHKLINE-ES2018GSK226405

PATIENT
  Age: 75 Year
  Sex: Male

DRUGS (7)
  1. MASTICAL D [Concomitant]
     Indication: PRODUCT USED FOR UNKNOWN INDICATION
     Dosage: UNK, 500MG/400UI
  2. NUCALA [Suspect]
     Active Substance: MEPOLIZUMAB
     Indication: PRODUCT USED FOR UNKNOWN INDICATION
     Dosage: UNK
     Dates: start: 20170119, end: 20180911
  3. LANSOPRAZOL [Concomitant]
     Active Substance: LANSOPRAZOLE
     Indication: PRODUCT USED FOR UNKNOWN INDICATION
     Dosage: 30 MG, UNK
     Route: 048
  4. SERETIDE [Concomitant]
     Active Substance: FLUTICASONE PROPIONATE\SALMETEROL XINAFOATE
     Indication: PRODUCT USED FOR UNKNOWN INDICATION
     Dosage: UNK
  5. DUODART [Concomitant]
     Active Substance: DUTASTERIDE\TAMSULOSIN
     Indication: PRODUCT USED FOR UNKNOWN INDICATION
     Dosage: UNK
  6. SPIRIVA [Concomitant]
     Active Substance: TIOTROPIUM BROMIDE MONOHYDRATE
     Indication: PRODUCT USED FOR UNKNOWN INDICATION
     Dosage: UNK
     Route: 055
  7. MONTELUKAST [Concomitant]
     Active Substance: MONTELUKAST SODIUM
     Indication: PRODUCT USED FOR UNKNOWN INDICATION
     Dosage: 10 MG, UNK

REACTIONS (10)
  - Eosinophilia [Unknown]
  - Paraesthesia [Recovering/Resolving]
  - Pleuritic pain [Recovered/Resolved]
  - Muscular weakness [Recovered/Resolved]
  - Claudication of jaw muscles [Recovered/Resolved]
  - Laboratory test abnormal [Recovered/Resolved]
  - Dyspnoea [Recovered/Resolved]
  - Body temperature abnormal [Recovered/Resolved]
  - Eosinophilic granulomatosis with polyangiitis [Recovering/Resolving]
  - Pain in extremity [Recovered/Resolved]

NARRATIVE: CASE EVENT DATE: 20180907
